FAERS Safety Report 8413191-2 (Version None)
Quarter: 2012Q2

REPORT INFORMATION
  Report Type: 
  Country: None (occurrence: None)
  Receive Date: 20120605
  Receipt Date: 20120531
  Transmission Date: 20120825
  Serious: No
  Sender: FDA-Public Use
  Company Number: US-AMGEN-USASP2012034253

PATIENT
  Age: 69 Year
  Sex: Female

DRUGS (8)
  1. PREDNISONE [Concomitant]
     Dosage: UNK MG, UNK
  2. ENBREL [Suspect]
     Indication: RHEUMATOID ARTHRITIS
     Dosage: 50 MG, QWK
     Dates: start: 20120101
  3. FISH OIL [Concomitant]
     Dosage: UNK MG, UNK
  4. METHOTREXATE [Concomitant]
     Dosage: UNK MG, UNK
  5. FOLIC ACID [Concomitant]
     Dosage: UNK MG, UNK
  6. VAGIFEM [Concomitant]
     Dosage: UNK MUG, UNK
  7. VITAMIN D [Concomitant]
     Dosage: 2000 UNITS
  8. LIPFEN [Concomitant]
     Dosage: UNK MG, UNK

REACTIONS (2)
  - CONTUSION [None]
  - INJECTION SITE PAIN [None]
